FAERS Safety Report 4639181-3 (Version None)
Quarter: 2005Q2

REPORT INFORMATION
  Report Type: 
  Country: None (occurrence: None)
  Receive Date: 20050419
  Receipt Date: 20050414
  Transmission Date: 20051028
  Serious: Yes (Other)
  Sender: FDA-Public Use
  Company Number: PHEH2005US04371

PATIENT
  Age: 58 Year
  Sex: Female
  Weight: 53 kg

DRUGS (2)
  1. AREDIA [Suspect]
     Indication: METASTASES TO BONE
     Dosage: UNK, UNK
     Dates: start: 20020531, end: 20031024
  2. AREDIA [Suspect]
     Dosage: 60MG Q4WKS
     Dates: start: 20040624, end: 20041022

REACTIONS (3)
  - FISTULA [None]
  - FISTULA REPAIR [None]
  - TOOTH EXTRACTION [None]
